FAERS Safety Report 21748839 (Version 1)
Quarter: 2022Q4

REPORT INFORMATION
  Report Type: Spontaneous
  Country: JP (occurrence: JP)
  Receive Date: 20221219
  Receipt Date: 20221219
  Transmission Date: 20230113
  Serious: Yes (Hospitalization, Other)
  Sender: FDA-Public Use
  Company Number: JP-PFIZER INC-202201362711

PATIENT
  Sex: Female
  Weight: 1.965 kg

DRUGS (4)
  1. METHYLPREDNISOLONE ACETATE [Suspect]
     Active Substance: METHYLPREDNISOLONE ACETATE
     Indication: Pancytopenia
     Dosage: 20 MG/KG, 1X/DAY (FOR 3 DAYS)
  2. PREDNISOLONE [Suspect]
     Active Substance: PREDNISOLONE
     Indication: Pancytopenia
     Dosage: 2 MG/KG, 1X/DAY
  3. PREDNISOLONE [Suspect]
     Active Substance: PREDNISOLONE
     Dosage: 5 MG, DAILY
  4. HUMAN IMMUNOGLOBULIN G [Suspect]
     Active Substance: HUMAN IMMUNOGLOBULIN G
     Indication: Pancytopenia
     Dosage: (TOTAL 12 G/KG)
     Route: 042

REACTIONS (3)
  - Hyperbilirubinaemia [Unknown]
  - Drug ineffective for unapproved indication [Unknown]
  - Off label use [Unknown]
